FAERS Safety Report 4730263-4 (Version None)
Quarter: 2005Q3

REPORT INFORMATION
  Report Type: 
  Country: None (occurrence: None)
  Receive Date: 20050801
  Receipt Date: 20050708
  Transmission Date: 20060218
  Serious: Yes (Hospitalization)
  Sender: FDA-Public Use
  Company Number: JP-ROCHE-410138

PATIENT
  Age: 49 Year
  Sex: Male

DRUGS (2)
  1. PANALDINE [Suspect]
     Route: 048
     Dates: start: 20011115, end: 20050622
  2. ASPIRIN [Suspect]
     Dosage: PATIENT RECEIVED 1 UNIT EVERY DAY (EITHER 81MG OR 100MG).
     Route: 048

REACTIONS (6)
  - DIZZINESS [None]
  - FAECES DISCOLOURED [None]
  - GASTROINTESTINAL HAEMORRHAGE [None]
  - MALAISE [None]
  - TREATMENT NONCOMPLIANCE [None]
  - VOMITING [None]
